FAERS Safety Report 19942242 (Version 1)
Quarter: 2021Q4

REPORT INFORMATION
  Report Type: Spontaneous
  Country: US (occurrence: US)
  Receive Date: 20211011
  Receipt Date: 20211011
  Transmission Date: 20220303
  Serious: Yes (Hospitalization, Disabling)
  Sender: FDA-Public Use
  Company Number: None

PATIENT
  Age: 53 Year
  Sex: Female
  Weight: 58.3 kg

DRUGS (3)
  1. ACETIC ACID [Suspect]
     Active Substance: ACETIC ACID
     Indication: Vulval disorder
     Dates: start: 20210715, end: 20210715
  2. MARCAINE [Concomitant]
     Active Substance: BUPIVACAINE HYDROCHLORIDE
     Dates: start: 20210715, end: 20210715
  3. BACITRACIN [Concomitant]
     Active Substance: BACITRACIN
     Dates: start: 20210715, end: 20210715

REACTIONS (7)
  - Drug hypersensitivity [None]
  - Urticaria [None]
  - Oedema genital [None]
  - Chemical burn [None]
  - Skin exfoliation [None]
  - Product dispensing error [None]
  - Incorrect dose administered [None]

NARRATIVE: CASE EVENT DATE: 20210715
